FAERS Safety Report 22378252 (Version 1)
Quarter: 2023Q2

REPORT INFORMATION
  Report Type: Spontaneous
  Country: US (occurrence: US)
  Receive Date: 20230529
  Receipt Date: 20230529
  Transmission Date: 20230722
  Serious: Yes (Life-Threatening, Hospitalization, Other)
  Sender: FDA-Public Use
  Company Number: US-ALKEM LABORATORIES LIMITED-US-ALKEM-2023-05269

PATIENT
  Age: 15 Year
  Sex: Female

DRUGS (4)
  1. DEFERASIROX [Suspect]
     Active Substance: DEFERASIROX
     Indication: Product used for unknown indication
     Dosage: 19 MILLIGRAM/KILOGRAM, QD (FERRITIN 1564NG/ML)
     Route: 065
  2. DEFERASIROX [Suspect]
     Active Substance: DEFERASIROX
     Dosage: 24 MILLIGRAM/KILOGRAM, QD (FERRITIN 2017NG/ML)
     Route: 065
  3. HYDROXYUREA [Suspect]
     Active Substance: HYDROXYUREA
     Indication: Product used for unknown indication
     Dosage: UNK (PAST DRUG)
     Route: 065
  4. HYDROXYUREA [Suspect]
     Active Substance: HYDROXYUREA
     Dosage: UNK
     Route: 065

REACTIONS (4)
  - Hyperammonaemia [Recovering/Resolving]
  - Encephalopathy [Unknown]
  - Lactic acidosis [Unknown]
  - Acute hepatic failure [Unknown]
